FAERS Safety Report 9140713 (Version 2)
Quarter: 2013Q1

REPORT INFORMATION
  Report Type: Spontaneous
  Country: DE (occurrence: SE)
  Receive Date: 20130305
  Receipt Date: 20130321
  Transmission Date: 20140127
  Serious: Yes (Other)
  Sender: FDA-Public Use
  Company Number: SE-FRI-1000043103

PATIENT
  Sex: Male

DRUGS (7)
  1. MEMANTINE [Suspect]
     Indication: DEMENTIA ALZHEIMER^S TYPE
     Dosage: 20 MG
     Route: 048
     Dates: start: 20111107, end: 201211
  2. VESICARE [Concomitant]
     Dates: start: 201112, end: 201204
  3. SIMVASTATIN [Concomitant]
     Dates: end: 20121011
  4. ALFUZOSIN [Concomitant]
     Dates: start: 201112, end: 201204
  5. FOLACIN [Concomitant]
  6. BEHEPAN [Concomitant]
  7. OXASCAND [Concomitant]

REACTIONS (2)
  - Abdominal discomfort [Recovered/Resolved]
  - Constipation [Recovered/Resolved]
